FAERS Safety Report 24418679 (Version 1)
Quarter: 2024Q4

REPORT INFORMATION
  Report Type: Spontaneous
  Country: CA (occurrence: CA)
  Receive Date: 20241009
  Receipt Date: 20241009
  Transmission Date: 20250114
  Serious: Yes (Other)
  Sender: SAMSUNG BIOEPIS
  Company Number: CA-SAMSUNG BIOEPIS-SB-2024-29621

PATIENT
  Age: 42 Year
  Sex: Female

DRUGS (1)
  1. RENFLEXIS [Suspect]
     Active Substance: INFLIXIMAB-ABDA
     Indication: Rheumatoid arthritis
     Route: 042

REACTIONS (4)
  - Sepsis [Recovered/Resolved]
  - Septic shock [Recovered/Resolved]
  - Renal disorder [Recovered/Resolved]
  - Off label use [Unknown]
